FAERS Safety Report 7554941-7 (Version None)
Quarter: 2011Q2

REPORT INFORMATION
  Report Type: 
  Country: None (occurrence: None)
  Receive Date: 20110617
  Receipt Date: 20110613
  Transmission Date: 20111010
  Serious: Yes (Hospitalization)
  Sender: FDA-Public Use
  Company Number: US-ABBOTT-11P-163-0732229-00

PATIENT
  Sex: Female
  Weight: 78.996 kg

DRUGS (9)
  1. TOPROL-XL [Concomitant]
     Indication: PRODUCT USED FOR UNKNOWN INDICATION
  2. BUPROPION HCL [Concomitant]
     Indication: PRODUCT USED FOR UNKNOWN INDICATION
  3. ASPIRIN [Concomitant]
     Indication: PRODUCT USED FOR UNKNOWN INDICATION
  4. NIASPAN [Suspect]
     Indication: PRODUCT USED FOR UNKNOWN INDICATION
     Dosage: AT BEDTIME
     Dates: start: 20080101
  5. PRILOSEC [Concomitant]
     Indication: PRODUCT USED FOR UNKNOWN INDICATION
  6. IMDUR [Concomitant]
     Indication: PRODUCT USED FOR UNKNOWN INDICATION
  7. NITROGLOYCERINE [Concomitant]
     Indication: PRODUCT USED FOR UNKNOWN INDICATION
  8. TRAZODONE HCL [Concomitant]
     Indication: PRODUCT USED FOR UNKNOWN INDICATION
  9. NIASPAN [Suspect]
     Route: 048
     Dates: start: 20110501

REACTIONS (7)
  - ABDOMINAL PAIN [None]
  - PANCREAS INFECTION [None]
  - PRURITUS GENERALISED [None]
  - VOMITING [None]
  - NAUSEA [None]
  - CHOLELITHIASIS [None]
  - PRURITUS [None]
